FAERS Safety Report 25037947 (Version 2)
Quarter: 2025Q2

REPORT INFORMATION
  Report Type: Spontaneous
  Country: US (occurrence: US)
  Receive Date: 20250304
  Receipt Date: 20250409
  Transmission Date: 20250717
  Serious: No
  Sender: BRISTOL MYERS SQUIBB
  Company Number: US-BRISTOL-MYERS SQUIBB COMPANY-2025-032054

PATIENT
  Age: 75 Year
  Sex: Female
  Weight: 91.63 kg

DRUGS (1)
  1. REVLIMID [Suspect]
     Active Substance: LENALIDOMIDE
     Indication: Plasma cell myeloma
     Route: 048

REACTIONS (9)
  - Oral pain [Unknown]
  - Neck pain [Unknown]
  - Arthralgia [Unknown]
  - Decreased appetite [Unknown]
  - Weight decreased [Unknown]
  - Illness [Unknown]
  - Hypophagia [Unknown]
  - Diarrhoea [Unknown]
  - Skin ulcer [Recovered/Resolved]
